FAERS Safety Report 20518677 (Version 1)
Quarter: 2022Q1

REPORT INFORMATION
  Report Type: Spontaneous
  Country: US (occurrence: None)
  Receive Date: 20220224
  Receipt Date: 20220224
  Transmission Date: 20220423
  Serious: No
  Sender: FDA-Public Use
  Company Number: None

PATIENT
  Age: 76 Year
  Sex: Female
  Weight: 78.3 kg

DRUGS (1)
  1. CYCLOPHOSPHAMIDE [Suspect]
     Active Substance: CYCLOPHOSPHAMIDE
     Indication: Fallopian tube cancer
     Dosage: FREQUENCY : DAILY;?
     Route: 048
     Dates: start: 20211119, end: 20220224

REACTIONS (2)
  - Pulmonary toxicity [None]
  - Therapy cessation [None]

NARRATIVE: CASE EVENT DATE: 20220224
